FAERS Safety Report 6244129-4 (Version None)
Quarter: 2009Q2

REPORT INFORMATION
  Report Type: 
  Country: None (occurrence: None)
  Receive Date: 20090625
  Receipt Date: 20090618
  Transmission Date: 20091009
  Serious: Yes (Hospitalization, Disabling)
  Sender: FDA-Public Use
  Company Number: US-ELI_LILLY_AND_COMPANY-US200906001353

PATIENT
  Sex: Female
  Weight: 85.034 kg

DRUGS (8)
  1. BYETTA [Suspect]
     Dosage: 5 UG, 2/D
     Route: 058
     Dates: start: 20081121
  2. BYETTA [Suspect]
     Dosage: 10 UG, 2/D
     Route: 058
     Dates: end: 20090416
  3. METFORMIN [Concomitant]
  4. CIMETIDINE [Concomitant]
     Dates: end: 20090401
  5. CLONAZEPAM [Concomitant]
     Dates: end: 20090401
  6. FENOFIBRATE [Concomitant]
     Indication: BLOOD TRIGLYCERIDES INCREASED
  7. CYMBALTA [Concomitant]
  8. SEROQUEL [Concomitant]

REACTIONS (7)
  - DIARRHOEA [None]
  - IMPAIRED GASTRIC EMPTYING [None]
  - MENTAL DISORDER [None]
  - MOOD ALTERED [None]
  - PANCREATITIS [None]
  - WEIGHT DECREASED [None]
  - WEIGHT INCREASED [None]
